FAERS Safety Report 5939596-7 (Version None)
Quarter: 2008Q4

REPORT INFORMATION
  Report Type: 
  Country: None (occurrence: None)
  Receive Date: 20081030
  Receipt Date: 20081022
  Transmission Date: 20090506
  Serious: Yes (Hospitalization, Other)
  Sender: FDA-Public Use
  Company Number: 2008SP019111

PATIENT
  Age: 51 Year
  Sex: Female

DRUGS (2)
  1. PEG-INTRON [Suspect]
     Indication: HEPATITIS C
     Dates: start: 20080816
  2. REBETOL [Suspect]
     Indication: HEPATITIS C
     Dosage: PO
     Route: 048
     Dates: start: 20080816

REACTIONS (21)
  - ASTHENIA [None]
  - CHILLS [None]
  - CHOKING SENSATION [None]
  - COUGH [None]
  - DRY MOUTH [None]
  - DYSPNOEA [None]
  - ERYTHEMA [None]
  - FATIGUE [None]
  - FEELING OF BODY TEMPERATURE CHANGE [None]
  - FOOD AVERSION [None]
  - HEADACHE [None]
  - INJECTION SITE DISCOLOURATION [None]
  - INJECTION SITE PRURITUS [None]
  - MUSCLE SPASMS [None]
  - PAIN IN EXTREMITY [None]
  - PULMONARY EMBOLISM [None]
  - PYREXIA [None]
  - SPUTUM DISCOLOURED [None]
  - THIRST [None]
  - THROMBOSIS [None]
  - TREMOR [None]
